FAERS Safety Report 10400580 (Version 1)
Quarter: 2014Q3

REPORT INFORMATION
  Report Type: Spontaneous
  Country: US (occurrence: US)
  Receive Date: 20140821
  Receipt Date: 20140821
  Transmission Date: 20150326
  Serious: No
  Sender: FDA-Public Use
  Company Number: US-ASTRAZENECA-2013SE73420

PATIENT
  Sex: Female

DRUGS (2)
  1. SYMBICORT [Suspect]
     Active Substance: BUDESONIDE\FORMOTEROL FUMARATE DIHYDRATE
     Dosage: 80/4.5 MCG, 2 PUFFS BID
     Route: 055
  2. METOPROLOL XL [Suspect]
     Active Substance: METOPROLOL
     Route: 048
     Dates: start: 201308

REACTIONS (2)
  - Malaise [Unknown]
  - Influenza like illness [Not Recovered/Not Resolved]
